FAERS Safety Report 8980500 (Version 1)
Quarter: 2012Q4

REPORT INFORMATION
  Report Type: 
  Country: IN (occurrence: IN)
  Receive Date: 20121221
  Receipt Date: 20121221
  Transmission Date: 20130627
  Serious: Yes (Other)
  Sender: FDA-Public Use
  Company Number: IN-PFIZER INC-2012321915

PATIENT
  Age: 8 Month
  Sex: Female
  Weight: 6 kg

DRUGS (4)
  1. ISONIAZID [Suspect]
     Indication: TUBERCULOSIS
     Dosage: 5 mg/kg, UNK
  2. RIFAMPICIN [Suspect]
     Indication: TUBERCULOSIS
     Dosage: 10 mg/kg, UNK
  3. ETHAMBUTOL [Suspect]
     Indication: TUBERCULOSIS
     Dosage: 20mg/kg, UNK
  4. PYRAZINAMIDE [Suspect]
     Indication: TUBERCULOSIS
     Dosage: 30mg/kg, UNK

REACTIONS (2)
  - Acute respiratory distress syndrome [Recovered/Resolved]
  - Feeding disorder of infancy or early childhood [Recovered/Resolved]
